FAERS Safety Report 8850346 (Version 1)
Quarter: 2012Q4

REPORT INFORMATION
  Report Type: 
  Country: US (occurrence: US)
  Receive Date: 20121019
  Receipt Date: 20121019
  Transmission Date: 20130627
  Serious: No
  Sender: FDA-Public Use
  Company Number: US-VERTEX PHARMACEUTICAL INC.-2012-022874

PATIENT
  Age: 55 Year
  Sex: Female
  Weight: 89 kg

DRUGS (7)
  1. INCIVEK [Suspect]
     Indication: HEPATITIS C
     Dosage: 750 mg, tid
     Route: 048
     Dates: start: 20121008
  2. RIBAVIRIN [Suspect]
     Indication: HEPATITIS C
     Dosage: UNK, bid
     Route: 048
     Dates: start: 20121008
  3. PEGASYS [Suspect]
     Indication: HEPATITIS C
     Dosage: 180 ?g, UNK
     Route: 058
     Dates: start: 20121008
  4. METOPROLOL [Concomitant]
     Indication: HYPERTENSION
     Dosage: 50 mg, bid
     Route: 048
  5. TRAZODONE [Concomitant]
     Indication: DEPRESSION
     Dosage: 50 mg, qd
     Route: 048
  6. PROZAC [Concomitant]
     Indication: DEPRESSION
     Dosage: 40 mg, UNK
     Route: 048
  7. INSULIN [Concomitant]
     Indication: DIABETES MELLITUS
     Dosage: 72 IU, qd

REACTIONS (3)
  - Abdominal pain upper [Not Recovered/Not Resolved]
  - Rectal haemorrhage [Not Recovered/Not Resolved]
  - Diarrhoea [Not Recovered/Not Resolved]
